FAERS Safety Report 6065726-5 (Version None)
Quarter: 2009Q1

REPORT INFORMATION
  Report Type: 
  Country: None (occurrence: None)
  Receive Date: 20090202
  Receipt Date: 20090116
  Transmission Date: 20090719
  Serious: Yes (Death)
  Sender: FDA-Public Use
  Company Number: 2009S1000116

PATIENT
  Age: 40 Year
  Sex: Female

DRUGS (6)
  1. ROXICODONE [Suspect]
     Dosage: PO
     Route: 048
     Dates: end: 20070101
  2. CARISOPRODOL [Suspect]
     Dosage: PO
     Route: 048
     Dates: end: 20070101
  3. PROPRANOLOL [Suspect]
     Dosage: PO
     Route: 048
     Dates: end: 20070101
  4. CITALOPRAM HYDROBROMIDE [Suspect]
     Dosage: PO
     Route: 048
     Dates: end: 20070101
  5. QUETIAPINE FUMARATE [Suspect]
     Dosage: PO
     Route: 048
     Dates: end: 20070101
  6. FLUOXETINE [Suspect]
     Dosage: PO
     Route: 048
     Dates: end: 20070101

REACTIONS (3)
  - CARDIAC ARREST [None]
  - COMPLETED SUICIDE [None]
  - RESPIRATORY ARREST [None]
